FAERS Safety Report 4603604-6 (Version None)
Quarter: 2005Q1

REPORT INFORMATION
  Report Type: 
  Country: None (occurrence: None)
  Receive Date: 20050310
  Receipt Date: 20050216
  Transmission Date: 20050727
  Serious: Yes (Hospitalization)
  Sender: FDA-Public Use
  Company Number: US-BRISTOL-MYERS SQUIBB COMPANY-12868873

PATIENT
  Age: 57 Year
  Sex: Female
  Weight: 70 kg

DRUGS (10)
  1. ATAZANAVIR [Suspect]
     Indication: HIV INFECTION
     Route: 048
     Dates: start: 20030322
  2. ABACAVIR [Suspect]
     Indication: HIV INFECTION
     Route: 048
     Dates: start: 20030322
  3. EPIVIR [Suspect]
     Indication: HIV INFECTION
     Route: 048
     Dates: start: 20030322
  4. CELEXA [Concomitant]
     Dates: start: 19980101
  5. BISOPROLOL FUMARATE + HCTZ [Concomitant]
     Dates: start: 20010715
  6. XANOR [Concomitant]
     Dates: start: 19940115
  7. PREMPRO [Concomitant]
     Dates: start: 20030220
  8. IBU [Concomitant]
     Dates: start: 20031020
  9. BEXTRA [Concomitant]
     Dates: start: 20041005
  10. AMBIEN [Concomitant]
     Dates: start: 20030101

REACTIONS (1)
  - MYOCARDIAL INFARCTION [None]
